FAERS Safety Report 11930118 (Version 1)
Quarter: 2016Q1

REPORT INFORMATION
  Report Type: Spontaneous
  Country: US (occurrence: US)
  Receive Date: 20160120
  Receipt Date: 20160120
  Transmission Date: 20160526
  Serious: Yes (Hospitalization)
  Sender: FDA-Public Use
  Company Number: US-SA-2016SA011775

PATIENT
  Age: 47 Year
  Sex: Male

DRUGS (1)
  1. FABRAZYME [Suspect]
     Active Substance: AGALSIDASE BETA
     Indication: GAUCHER^S DISEASE
     Dosage: DOSE: 35 MG + 25 MG
     Route: 042
     Dates: start: 20150603

REACTIONS (1)
  - Hernia repair [Unknown]

NARRATIVE: CASE EVENT DATE: 20151218
